FAERS Safety Report 9149855 (Version 3)
Quarter: 2013Q2

REPORT INFORMATION
  Report Type: Report from Study
  Country: KR (occurrence: KR)
  Receive Date: 20130308
  Receipt Date: 20130415
  Transmission Date: 20140414
  Serious: Yes (Hospitalization)
  Sender: FDA-Public Use
  Company Number: KR-PFIZER INC-2013075576

PATIENT
  Age: 72 Year
  Sex: Male

DRUGS (17)
  1. IRINOTECAN HCL [Suspect]
     Indication: NON-SMALL CELL LUNG CANCER
     Dosage: 60 MG/M2, UNK
     Route: 042
     Dates: start: 20130218, end: 20130225
  2. CISPLATIN [Suspect]
     Indication: NON-SMALL CELL LUNG CANCER
     Dosage: 30 MG/M2, UNK
     Route: 042
     Dates: start: 20130218, end: 20130225
  3. ATENOLOL [Concomitant]
     Indication: HYPERTENSION
     Dosage: 25 MG, 1X/DAY
     Route: 048
     Dates: start: 2010
  4. VALSARTAN [Concomitant]
     Indication: HYPERTENSION
     Dosage: 160 MG, 1X/DAY
     Route: 048
     Dates: start: 2010
  5. ATORVASTATIN [Concomitant]
     Indication: ANGINA PECTORIS
     Dosage: 20 MG, 1X/DAY
     Route: 048
     Dates: start: 2010
  6. CLOPIDOGREL [Concomitant]
     Indication: ANGINA PECTORIS
     Dosage: 75 MG, 1X/DAY
     Route: 048
     Dates: start: 2010
  7. LACTULOSE [Concomitant]
     Indication: CONSTIPATION
     Dosage: 15 ML, AS NEEDED
     Route: 048
     Dates: start: 20130226, end: 20130226
  8. MAGNESIUM HYDROXIDE [Concomitant]
     Indication: CONSTIPATION
     Dosage: 500 MG, AS NEEDED
     Route: 048
     Dates: start: 20130224, end: 20130301
  9. TAMSULOSIN [Concomitant]
     Indication: BENIGN PROSTATIC HYPERPLASIA
     Dosage: 0.4 MG, 1X/DAY
     Route: 048
     Dates: start: 201301
  10. BETHANECHOL [Concomitant]
     Indication: BENIGN PROSTATIC HYPERPLASIA
     Dosage: 50 MG, 2X/DAY
     Route: 048
     Dates: start: 201301
  11. GRANISETRON [Concomitant]
     Indication: PROPHYLAXIS
     Dosage: 1 MG, 1X/DAY
     Route: 048
     Dates: start: 20130128, end: 20130228
  12. SODIUM BICARBONATE [Concomitant]
     Indication: PROPHYLAXIS
     Dosage: 1000 MG, 2X/DAY
     Route: 048
     Dates: start: 20130128, end: 20130301
  13. URSODEOXYCHOLIC ACID [Concomitant]
     Indication: PROPHYLAXIS
     Dosage: 100 MG, 3X/DAY
     Route: 048
     Dates: start: 20130128, end: 20130228
  14. METOCLOPRAMIDE [Concomitant]
     Indication: NAUSEA
     Dosage: 5 MG, AS NEEDED
     Route: 048
     Dates: start: 20130302
  15. DOMPERIDONE [Concomitant]
     Indication: NAUSEA
     Dosage: 12.72 MG, AS NEEDED
     Route: 048
     Dates: start: 20130302
  16. ULTRACET [Concomitant]
     Indication: HEADACHE
     Dosage: 325/37.5 MG, PRN
     Route: 048
     Dates: start: 20130225
  17. FILGRASTIM [Concomitant]
     Indication: NEUTROPENIA
     Dosage: 300 UG, SINGLE
     Route: 042
     Dates: start: 20130302, end: 20130302

REACTIONS (1)
  - Septic shock [Recovered/Resolved]
